FAERS Safety Report 9097800 (Version 1)
Quarter: 2013Q1

REPORT INFORMATION
  Report Type: Spontaneous
  Country: FR (occurrence: FR)
  Receive Date: 20130212
  Receipt Date: 20130212
  Transmission Date: 20140127
  Serious: Yes (Hospitalization)
  Sender: FDA-Public Use
  Company Number: FR-PFIZER INC-2013048016

PATIENT
  Age: 80 Year
  Sex: Female

DRUGS (17)
  1. TRIFLUCAN [Suspect]
     Dosage: UNK
     Dates: start: 20121114
  2. CORDARONE [Suspect]
     Dosage: UNK
     Dates: start: 20121029
  3. ZOPHREN [Suspect]
     Dosage: UNK
     Dates: start: 20121111
  4. PREVISCAN [Suspect]
     Dosage: 20 MG, UNK
     Route: 048
     Dates: start: 20121029
  5. FUNGIZONE [Suspect]
     Dosage: UNK
     Route: 048
     Dates: start: 20121114
  6. TAHOR [Concomitant]
     Dosage: UNK
     Dates: start: 2008
  7. NEURONTIN [Concomitant]
     Dosage: UNK
     Dates: start: 2008
  8. LEDERFOLIN [Concomitant]
     Dosage: UNK
     Dates: start: 2008
  9. INEXIUM [Concomitant]
     Dosage: UNK
     Dates: start: 2008
  10. TEMERIT [Concomitant]
     Dosage: UNK
     Dates: start: 2008
  11. DAFALGAN CODEINE [Concomitant]
     Dosage: UNK
     Dates: start: 2008
  12. IXPRIM [Concomitant]
     Dosage: UNK
     Dates: start: 2008
  13. VITAMIN B12 [Concomitant]
     Dosage: UNK
     Route: 048
     Dates: start: 2008
  14. BACTRIM [Concomitant]
     Dosage: UNK
     Dates: start: 2008
  15. LOVENOX [Concomitant]
     Dosage: UNK
     Dates: start: 2008
  16. ORACILLINE [Concomitant]
     Dosage: UNK
     Dates: start: 2008
  17. NIPENT [Concomitant]
     Dosage: UNK
     Dates: start: 20121105, end: 20121105

REACTIONS (1)
  - Toxic skin eruption [Recovered/Resolved]
